FAERS Safety Report 7223865-7 (Version None)
Quarter: 2011Q1

REPORT INFORMATION
  Report Type: 
  Country: None (occurrence: None)
  Receive Date: 20110112
  Receipt Date: 20110106
  Transmission Date: 20110831
  Serious: Yes (Hospitalization, Other)
  Sender: FDA-Public Use
  Company Number: BR-ELI_LILLY_AND_COMPANY-BR201012005230

PATIENT
  Sex: Female
  Weight: 50 kg

DRUGS (2)
  1. HUMULIN N [Suspect]
     Indication: TYPE 2 DIABETES MELLITUS
     Dosage: 25 IU, EACH MORNING
     Route: 058
     Dates: start: 20080522
  2. HUMULIN N [Suspect]
     Dosage: 15 IU, EACH EVENING
     Route: 058
     Dates: start: 20080522

REACTIONS (2)
  - EYE OPERATION [None]
  - RETINAL INJURY [None]
